FAERS Safety Report 21692686 (Version 1)
Quarter: 2022Q4

REPORT INFORMATION
  Report Type: Spontaneous
  Country: IN (occurrence: IN)
  Receive Date: 20221207
  Receipt Date: 20221207
  Transmission Date: 20230112
  Serious: Yes (Other)
  Sender: FDA-Public Use
  Company Number: None

PATIENT
  Age: 40 Year
  Sex: Male

DRUGS (4)
  1. MYCOPHENOLATE MOFETIL [Suspect]
     Active Substance: MYCOPHENOLATE MOFETIL
     Indication: IgA nephropathy
     Dosage: 500 MILLIGRAM, BID
     Route: 065
  2. MYCOPHENOLATE MOFETIL [Suspect]
     Active Substance: MYCOPHENOLATE MOFETIL
     Indication: Glomerulonephritis chronic
  3. PREDNISOLONE [Suspect]
     Active Substance: PREDNISOLONE
     Indication: IgA nephropathy
     Dosage: 5 MILLIGRAM, EVERY ONE DAY
     Route: 065
  4. PREDNISOLONE [Suspect]
     Active Substance: PREDNISOLONE
     Indication: Glomerulonephritis chronic

REACTIONS (3)
  - Pneumonia cytomegaloviral [Recovering/Resolving]
  - Anaemia [Recovered/Resolved]
  - Weight decreased [Unknown]
